FAERS Safety Report 8809928 (Version 1)
Quarter: 2012Q4

REPORT INFORMATION
  Report Type: 
  Country: US (occurrence: US)
  Receive Date: 20120926
  Receipt Date: 20120926
  Transmission Date: 20130627
  Serious: Yes (Other)
  Sender: FDA-Public Use
  Company Number: US-UCBSA-067224

PATIENT

DRUGS (1)
  1. CIMZIA [Suspect]

REACTIONS (2)
  - Basal cell carcinoma [Unknown]
  - Bladder cancer [Unknown]
